FAERS Safety Report 5893321-7 (Version None)
Quarter: 2008Q3

REPORT INFORMATION
  Report Type: 
  Country: None (occurrence: None)
  Receive Date: 20080923
  Receipt Date: 20080919
  Transmission Date: 20090109
  Serious: Yes (Other)
  Sender: FDA-Public Use
  Company Number: B0538180A

PATIENT
  Age: 27 Year

DRUGS (1)
  1. EPOPROSTENOL SODIUM [Suspect]
     Route: 042

REACTIONS (2)
  - GOITRE [None]
  - HYPERTHYROIDISM [None]
